FAERS Safety Report 12696937 (Version 1)
Quarter: 2016Q3

REPORT INFORMATION
  Report Type: Spontaneous
  Country: None (occurrence: None)
  Receive Date: 20160829
  Receipt Date: 20160829
  Transmission Date: 20161109
  Serious: Yes (Other)
  Sender: FDA-Public Use
  Company Number: None

PATIENT
  Age: 6 Year
  Sex: Male
  Weight: 19.05 kg

DRUGS (4)
  1. R.C. ESSENTIAL OILS [Concomitant]
  2. MONTELUKAST [Suspect]
     Active Substance: MONTELUKAST SODIUM
     Indication: ASTHMA
     Route: 048
     Dates: start: 20151001, end: 20160824
  3. FLONASE [Concomitant]
     Active Substance: FLUTICASONE PROPIONATE
  4. ALBUTEROL. [Concomitant]
     Active Substance: ALBUTEROL

REACTIONS (6)
  - Anxiety [None]
  - Aggression [None]
  - Decreased interest [None]
  - Crying [None]
  - Abnormal behaviour [None]
  - Mood swings [None]

NARRATIVE: CASE EVENT DATE: 20151001
